FAERS Safety Report 8397834-8 (Version None)
Quarter: 2012Q2

REPORT INFORMATION
  Report Type: 
  Country: None (occurrence: None)
  Receive Date: 20120531
  Receipt Date: 20120523
  Transmission Date: 20120825
  Serious: Yes (Life-Threatening, Hospitalization)
  Sender: FDA-Public Use
  Company Number: ES-JNJFOC-20120518679

PATIENT
  Sex: Male
  Weight: 120 kg

DRUGS (5)
  1. ENALAPRIL MALEATE [Concomitant]
     Indication: HYPERTENSION
     Route: 065
  2. INSULIN [Concomitant]
     Indication: DIABETES MELLITUS
     Route: 065
  3. HYDROCHLOROTHIAZIDE [Concomitant]
     Indication: HYPERTENSION
     Route: 065
  4. STELARA [Suspect]
     Indication: PSORIASIS
     Route: 058
     Dates: start: 20120510
  5. SIMVASTATIN [Concomitant]
     Indication: DYSLIPIDAEMIA
     Route: 065

REACTIONS (1)
  - HAEMORRHAGE INTRACRANIAL [None]
